FAERS Safety Report 22655808 (Version 1)
Quarter: 2023Q2

REPORT INFORMATION
  Report Type: Spontaneous
  Country: KR (occurrence: KR)
  Receive Date: 20230629
  Receipt Date: 20230629
  Transmission Date: 20230722
  Serious: Yes (Life-Threatening, Other)
  Sender: FDA-Public Use
  Company Number: KR-MYLANLABS-2023M1068202

PATIENT
  Age: 67 Year
  Sex: Female

DRUGS (3)
  1. CELEBREX [Suspect]
     Active Substance: CELECOXIB
     Indication: Anaphylactic shock
     Dosage: 100 MILLIGRAM
     Route: 065
     Dates: end: 20210908
  2. REBAMIPIDE [Concomitant]
     Active Substance: REBAMIPIDE
     Indication: Anaphylactic shock
     Dosage: 100 MILLIGRAM
     Route: 065
     Dates: end: 20210908
  3. TRIAMCINOLONE [Concomitant]
     Active Substance: TRIAMCINOLONE
     Indication: Anaphylactic shock
     Dosage: UNK
     Route: 065
     Dates: end: 20210908

REACTIONS (2)
  - Anaphylactic reaction [Recovering/Resolving]
  - Off label use [Unknown]
